FAERS Safety Report 6078575-9 (Version None)
Quarter: 2009Q1

REPORT INFORMATION
  Report Type: 
  Country: None (occurrence: None)
  Receive Date: 20090212
  Receipt Date: 20090204
  Transmission Date: 20090719
  Serious: Yes (Hospitalization, Other)
  Sender: FDA-Public Use
  Company Number: 2009AL000713

PATIENT
  Age: 61 Year
  Sex: Male

DRUGS (4)
  1. CITALOPRAM HYDROBROMIDE [Suspect]
  2. DIAZEPAM TABLETS USP, 10 MG (PUREPAC) [Suspect]
  3. CLOZARIL [Concomitant]
  4. VALPROIC ACID [Concomitant]

REACTIONS (2)
  - CONFUSIONAL STATE [None]
  - MULTIPLE DRUG OVERDOSE [None]
